FAERS Safety Report 18686484 (Version 1)
Quarter: 2020Q4

REPORT INFORMATION
  Report Type: Spontaneous
  Country: JP (occurrence: JP)
  Receive Date: 20201231
  Receipt Date: 20201231
  Transmission Date: 20210114
  Serious: Yes (Other)
  Sender: FDA-Public Use
  Company Number: JP-BRISTOL-MYERS SQUIBB COMPANY-BMS-2020-111902

PATIENT
  Age: 78 Year
  Sex: Female

DRUGS (3)
  1. ELIQUIS [Suspect]
     Active Substance: APIXABAN
     Indication: CEREBROVASCULAR ACCIDENT PROPHYLAXIS
     Dosage: 5 MILLIGRAM, BID
     Route: 048
  2. MINODRONIC ACID [Concomitant]
     Active Substance: MINODRONIC ACID
     Indication: OSTEOPOROSIS POSTMENOPAUSAL
     Route: 048
  3. LYRICA [Suspect]
     Active Substance: PREGABALIN
     Indication: NEURALGIA
     Dosage: 75 MILLIGRAM, BID
     Route: 048

REACTIONS (2)
  - Dyspnoea [Unknown]
  - Cardiac failure [Recovering/Resolving]
